FAERS Safety Report 9753521 (Version 2)
Quarter: 2014Q1

REPORT INFORMATION
  Report Type: Spontaneous
  Country: FR (occurrence: FR)
  Receive Date: 20131213
  Receipt Date: 20140325
  Transmission Date: 20141002
  Serious: Yes (Hospitalization)
  Sender: FDA-Public Use
  Company Number: FR-SA-2013SA129545

PATIENT
  Age: 71 Year
  Sex: Male

DRUGS (15)
  1. FLUDARA [Suspect]
     Indication: CHRONIC LYMPHOCYTIC LEUKAEMIA
     Route: 048
     Dates: start: 20130924, end: 20131026
  2. XATRAL [Suspect]
     Indication: PRODUCT USED FOR UNKNOWN INDICATION
     Route: 048
     Dates: start: 20131005, end: 20131101
  3. ENDOXAN [Suspect]
     Indication: CHRONIC LYMPHOCYTIC LEUKAEMIA
     Route: 048
     Dates: start: 20130924, end: 20131026
  4. BACTRIM FORTE [Suspect]
     Indication: PRODUCT USED FOR UNKNOWN INDICATION
     Route: 065
     Dates: start: 20130924, end: 20131029
  5. ZELITREX [Suspect]
     Indication: PRODUCT USED FOR UNKNOWN INDICATION
     Route: 048
     Dates: start: 20130924, end: 20131029
  6. MABTHERA [Suspect]
     Indication: CHRONIC LYMPHOCYTIC LEUKAEMIA
     Dosage: DOSE: 0.0733 G (2 IN 1 MONTH)
     Route: 042
     Dates: start: 20130924, end: 20131026
  7. INEXIUM [Concomitant]
  8. PRAVASTATIN [Concomitant]
  9. FLECAINE [Concomitant]
  10. KARDEGIC [Concomitant]
  11. METFORMIN [Concomitant]
  12. INNOHEP [Concomitant]
     Dates: start: 201309
  13. GRANOCYTE [Concomitant]
     Dates: start: 20131030, end: 20131104
  14. PENTACARINAT [Concomitant]
     Dates: start: 20131029
  15. AERIUS [Concomitant]
     Dates: start: 20131029

REACTIONS (1)
  - Drug reaction with eosinophilia and systemic symptoms [Recovered/Resolved]
